FAERS Safety Report 9118082 (Version 4)
Quarter: 2013Q2

REPORT INFORMATION
  Report Type: Spontaneous
  Country: US (occurrence: US)
  Receive Date: 20130209
  Receipt Date: 20130607
  Transmission Date: 20140414
  Serious: Yes (Hospitalization)
  Sender: FDA-Public Use
  Company Number: US-B.I. PHARMACEUTICALS,INC./RIDGEFIELD-2013-BI-03357BP

PATIENT
  Age: 73 Year
  Sex: Female
  Weight: 58.51 kg

DRUGS (21)
  1. PRADAXA [Suspect]
     Indication: ANTICOAGULANT THERAPY
     Dosage: 150 MG
     Route: 048
     Dates: start: 20111222, end: 20120109
  2. PRADAXA [Suspect]
     Indication: ATRIAL FIBRILLATION
  3. ADVAIR [Concomitant]
     Dosage: 2 PUF
  4. ALBUTEROL [Concomitant]
  5. AMIODARONE [Concomitant]
     Dosage: 400 MG
  6. ASPIRIN [Concomitant]
     Dosage: 325 MG
  7. BENADRYL [Concomitant]
  8. CARVEDILOL [Concomitant]
     Dosage: 25 MG
  9. CINNAMON [Concomitant]
  10. CO-Q-10 [Concomitant]
  11. FENOFIBRATE [Concomitant]
     Dosage: 160 MG
  12. FISH OIL [Concomitant]
     Dosage: 3000 MG
  13. LASIX [Concomitant]
     Dosage: 40 MG
  14. IPRATROPIUM [Concomitant]
  15. LEVOTHYROXINE [Concomitant]
     Dosage: 100 MCG
  16. LISINOPRIL [Concomitant]
     Dosage: 5 MG
  17. MUCINEX [Concomitant]
     Dosage: 1200 MG
  18. NIACIN [Concomitant]
     Dosage: 1000 MG
  19. NYSTATIN [Concomitant]
  20. POTASSIUM [Concomitant]
     Dosage: 20 MEQ
  21. VITAMIN D3 [Concomitant]
     Dosage: 2000 U

REACTIONS (1)
  - Upper gastrointestinal haemorrhage [Unknown]
